FAERS Safety Report 7150730-6 (Version None)
Quarter: 2010Q4

REPORT INFORMATION
  Report Type: 
  Country: None (occurrence: None)
  Receive Date: 20101124
  Receipt Date: 20101108
  Transmission Date: 20110411
  Serious: Yes (Life-Threatening, Hospitalization)
  Sender: FDA-Public Use
  Company Number: 1000017357

PATIENT
  Age: 48 Year
  Sex: Female

DRUGS (4)
  1. CITALOPRAM HYDROBROMIDE [Suspect]
     Dosage: 40 MG (20 MG, 2 IN 1 D), ORAL
     Route: 048
  2. DIAZEPAM [Suspect]
     Dosage: 6 MG (2 MG, 3 IN 1 D), ORAL
     Route: 048
  3. OLANZAPINE [Suspect]
     Dosage: 10 MG (5 MG, 2 IN 1 D), ORAL
     Route: 048
  4. ZOPICLONE (ZOPICLONE) [Suspect]
     Dosage: 3.75 MG, ORAL
     Route: 048

REACTIONS (3)
  - CARDIAC ARREST [None]
  - RESPIRATORY ARREST [None]
  - SYNCOPE [None]
